FAERS Safety Report 7557561-3 (Version None)
Quarter: 2011Q2

REPORT INFORMATION
  Report Type: 
  Country: None (occurrence: None)
  Receive Date: 20110620
  Receipt Date: 20110609
  Transmission Date: 20111010
  Serious: Yes (Other)
  Sender: FDA-Public Use
  Company Number: JP-ASTRAZENECA-2011SE35783

PATIENT
  Age: 60 Year
  Sex: Female

DRUGS (7)
  1. CLONAZEPAM [Concomitant]
     Route: 048
  2. CRESTOR [Suspect]
     Indication: DYSLIPIDAEMIA
     Route: 048
     Dates: start: 20110420
  3. PREDNISOLONE [Concomitant]
     Route: 048
  4. SERENAMIN [Concomitant]
     Route: 048
  5. DEPAS [Concomitant]
     Route: 048
  6. OLOPATADINE HCL [Concomitant]
     Route: 048
  7. OMERAP [Concomitant]
     Route: 048

REACTIONS (2)
  - OEDEMA [None]
  - GINGIVAL BLEEDING [None]
